FAERS Safety Report 5904741-6 (Version None)
Quarter: 2008Q3

REPORT INFORMATION
  Report Type: 
  Country: None (occurrence: None)
  Receive Date: 20080909
  Receipt Date: 20080404
  Transmission Date: 20090109
  Serious: Yes (Hospitalization)
  Sender: FDA-Public Use
  Company Number: 163-20785-08031037

PATIENT
  Sex: Female

DRUGS (2)
  1. THALIDOMIDE [Suspect]
     Indication: MULTIPLE MYELOMA
     Dosage: 100 MG, QD, ORAL : 50 MG, QD, ORAL
     Route: 048
     Dates: start: 20070907
  2. THALIDOMIDE [Suspect]
     Indication: MULTIPLE MYELOMA
     Dosage: 100 MG, QD, ORAL : 50 MG, QD, ORAL
     Route: 048
     Dates: start: 20071102

REACTIONS (3)
  - LOCALISED INFECTION [None]
  - OEDEMA [None]
  - RENAL FAILURE [None]
